FAERS Safety Report 23874282 (Version 1)
Quarter: 2024Q2

REPORT INFORMATION
  Report Type: Spontaneous
  Country: US (occurrence: None)
  Receive Date: 20240520
  Receipt Date: 20240520
  Transmission Date: 20240716
  Serious: Yes (Hospitalization)
  Sender: FDA-Public Use
  Company Number: None

PATIENT
  Age: 46 Year
  Sex: Female

DRUGS (9)
  1. TUBERCULIN PURIFIED PROTEIN DERIVATIVE [Suspect]
     Active Substance: TUBERCULIN PURIFIED PROTEIN DERIVATIVE
     Dosage: SC/SQ RIGHT ARM
     Route: 058
  2. RIMEGEPANT [Concomitant]
     Active Substance: RIMEGEPANT
  3. OMEPRAZOLE [Concomitant]
     Active Substance: DONEPEZIL HYDROCHLORIDE\OMEPRAZOLE\OMEPRAZOLE MAGNESIUM
  4. NITROGLYCERIN [Concomitant]
     Active Substance: NITROGLYCERIN
  5. NITROFURANTOIN [Concomitant]
     Active Substance: NITROFURANTOIN
  6. NEBIVOLOL [Concomitant]
     Active Substance: NEBIVOLOL
  7. HYDROCHLOROTHIAZIDE\LISINOPRIL [Concomitant]
     Active Substance: HYDROCHLOROTHIAZIDE\LISINOPRIL
  8. LEVOTHYROXINE [Concomitant]
     Active Substance: LEVOTHYROXINE\LEVOTHYROXINE SODIUM
  9. CLONAZEPAM [Concomitant]
     Active Substance: CLONAZEPAM

REACTIONS (6)
  - Dyspnoea [None]
  - Paraesthesia [None]
  - Paraesthesia oral [None]
  - Paraesthesia [None]
  - Erythema [None]
  - Flushing [None]

NARRATIVE: CASE EVENT DATE: 20240419
